FAERS Safety Report 9649378 (Version 1)
Quarter: 2013Q4

REPORT INFORMATION
  Report Type: Spontaneous
  Country: GB (occurrence: GB)
  Receive Date: 20131028
  Receipt Date: 20131028
  Transmission Date: 20140711
  Serious: Yes (Disabling, Other)
  Sender: FDA-Public Use
  Company Number: GB-WATSON-2013-19510

PATIENT
  Age: 55 Year
  Sex: Male
  Weight: 122 kg

DRUGS (2)
  1. LERCANIDIPINE HYDROCHLORIDE (UNKNOWN) [Suspect]
     Indication: HYPERTENSION
     Dosage: 10 MG, UNKNOWN
     Route: 048
  2. LOSARTAN POTASSIUM (UNKNOWN) [Suspect]
     Indication: HYPERTENSION
     Dosage: 50 MG, UNKNOWN
     Route: 048

REACTIONS (6)
  - Vomiting [Recovered/Resolved with Sequelae]
  - Dizziness [Recovered/Resolved]
  - Disorientation [Recovered/Resolved]
  - Balance disorder [Recovered/Resolved]
  - Coordination abnormal [Recovered/Resolved]
  - Food interaction [Recovered/Resolved]
